FAERS Safety Report 12783093 (Version 2)
Quarter: 2016Q4

REPORT INFORMATION
  Report Type: Spontaneous
  Country: JP (occurrence: JP)
  Receive Date: 20160927
  Receipt Date: 20161022
  Transmission Date: 20170207
  Serious: Yes (Other)
  Sender: FDA-Public Use
  Company Number: JP-SUN PHARMACEUTICAL INDUSTRIES LTD-2016R1-124723

PATIENT
  Age: 43 Year
  Sex: Female

DRUGS (4)
  1. DOXORUBICIN [Suspect]
     Active Substance: DOXORUBICIN
     Indication: METASTASES TO LIVER
     Dosage: PERFORMED ONLY FOR 2 COURSES
     Route: 065
  2. IFOSFAMIDE. [Suspect]
     Active Substance: IFOSFAMIDE
     Indication: METASTASES TO LIVER
     Dosage: PERFORMED ONLY 2 COURSE
     Route: 065
  3. MESNA. [Suspect]
     Active Substance: MESNA
     Indication: METASTASES TO LIVER
     Dosage: PERFORMED ONLY FOR 2 COURSES
     Route: 065
  4. DACARBAZINE. [Suspect]
     Active Substance: DACARBAZINE
     Indication: METASTASES TO LIVER
     Dosage: 2 COURSES
     Route: 065

REACTIONS (1)
  - Febrile neutropenia [Unknown]
